FAERS Safety Report 14002997 (Version 1)
Quarter: 2017Q3

REPORT INFORMATION
  Report Type: Report from Study
  Country: None (occurrence: BR)
  Receive Date: 20170922
  Receipt Date: 20170922
  Transmission Date: 20171128
  Serious: Yes (Death)
  Sender: FDA-Public Use
  Company Number: BR-ABBVIE-17K-020-2108106-00

PATIENT
  Sex: Female

DRUGS (1)
  1. HUMIRA [Suspect]
     Active Substance: ADALIMUMAB
     Indication: RHEUMATOID ARTHRITIS
     Route: 058
     Dates: start: 20160609

REACTIONS (6)
  - Cardiac failure [Fatal]
  - Gastric disorder [Fatal]
  - Tuberculosis [Fatal]
  - Pneumonia [Fatal]
  - Renal failure [Fatal]
  - Hepatic failure [Fatal]
